FAERS Safety Report 7086664-5 (Version None)
Quarter: 2010Q4

REPORT INFORMATION
  Report Type: 
  Country: None (occurrence: None)
  Receive Date: 20101105
  Receipt Date: 20101027
  Transmission Date: 20110411
  Serious: Yes (Death, Other)
  Sender: FDA-Public Use
  Company Number: JP-ELI_LILLY_AND_COMPANY-JP201002001764

PATIENT
  Sex: Male
  Weight: 97 kg

DRUGS (6)
  1. GEMZAR [Suspect]
     Indication: BILE DUCT CANCER STAGE IV
     Dosage: 1000 MG/M2, OTHER
     Route: 042
     Dates: start: 20070717, end: 20080715
  2. GEMZAR [Suspect]
     Dosage: 1000 MG/M2, OTHER
     Route: 042
     Dates: start: 20080729, end: 20090612
  3. TS 1 [Concomitant]
     Indication: BILE DUCT CANCER STAGE IV
     Dosage: 150 MG, OTHER
     Route: 048
     Dates: start: 20080729, end: 20090525
  4. TS 1 [Concomitant]
     Dosage: 120 MG, OTHER
     Route: 048
     Dates: start: 20090811, end: 20091011
  5. CISPLATIN [Concomitant]
     Indication: BILE DUCT CANCER STAGE IV
     Dosage: 5 MG, DAILY (1/D)
     Route: 042
     Dates: start: 20090608, end: 20090612
  6. FLUOROURACIL [Concomitant]
     Indication: BILE DUCT CANCER STAGE IV
     Dosage: 250 MG, DAILY (1/D)
     Route: 042
     Dates: start: 20090608, end: 20090612

REACTIONS (3)
  - HEPATIC CIRRHOSIS [None]
  - METASTASES TO LIVER [None]
  - VARICES OESOPHAGEAL [None]
